FAERS Safety Report 5310438-6 (Version None)
Quarter: 2007Q2

REPORT INFORMATION
  Report Type: 
  Country: None (occurrence: None)
  Receive Date: 20070427
  Receipt Date: 20070417
  Transmission Date: 20071010
  Serious: Yes (Hospitalization)
  Sender: FDA-Public Use
  Company Number: FR-BOEHRINGER INGELHEIM PHARMACEUTICALS, INC.-2007-DE-02402BY

PATIENT
  Age: 83 Year
  Sex: Male

DRUGS (4)
  1. PRITOR [Suspect]
     Indication: DRUG USE FOR UNKNOWN INDICATION
     Route: 048
  2. ANANDRON [Suspect]
     Indication: PROSTATE CANCER
     Route: 048
  3. XATRAL [Suspect]
     Indication: DRUG USE FOR UNKNOWN INDICATION
     Route: 048
  4. NOVONORM [Suspect]
     Indication: DRUG USE FOR UNKNOWN INDICATION

REACTIONS (7)
  - DIZZINESS [None]
  - DIZZINESS POSTURAL [None]
  - GENERAL PHYSICAL HEALTH DETERIORATION [None]
  - HYPONATRAEMIA [None]
  - NAUSEA [None]
  - TINNITUS [None]
  - VOMITING [None]
